FAERS Safety Report 23766814 (Version 1)
Quarter: 2024Q2

REPORT INFORMATION
  Report Type: Spontaneous
  Country: FR (occurrence: FR)
  Receive Date: 20240422
  Receipt Date: 20240422
  Transmission Date: 20240716
  Serious: Yes (Other)
  Sender: FDA-Public Use
  Company Number: None

PATIENT
  Age: 44 Year
  Sex: Female

DRUGS (3)
  1. TRASTUZUMAB [Suspect]
     Active Substance: TRASTUZUMAB
     Indication: Breast cancer
     Dosage: UNK
     Route: 040
     Dates: start: 20231113, end: 20240216
  2. DOCETAXEL [Suspect]
     Active Substance: DOCETAXEL\DOCETAXEL ANHYDROUS
     Indication: Breast cancer
     Dosage: UNK
     Route: 040
     Dates: start: 20231113, end: 20240216
  3. EPIRUBICIN [Suspect]
     Active Substance: EPIRUBICIN
     Indication: Breast cancer
     Dosage: 240 MILLIGRAM/SQ. METER
     Route: 040
     Dates: start: 20230821, end: 20231003

REACTIONS (1)
  - Heart failure with midrange ejection fraction [Not Recovered/Not Resolved]

NARRATIVE: CASE EVENT DATE: 20240319
